FAERS Safety Report 10248361 (Version 1)
Quarter: 2014Q2

REPORT INFORMATION
  Report Type: Report from Study
  Country: BR (occurrence: BR)
  Receive Date: 20140620
  Receipt Date: 20140620
  Transmission Date: 20141212
  Serious: Yes (Death, Other)
  Sender: FDA-Public Use
  Company Number: BR-ROCHE-1418513

PATIENT
  Sex: 0

DRUGS (5)
  1. MYCOPHENOLATE MOFETIL [Suspect]
     Indication: PROPHYLAXIS AGAINST TRANSPLANT REJECTION
     Route: 065
  2. TACROLIMUS [Suspect]
     Indication: PROPHYLAXIS AGAINST TRANSPLANT REJECTION
     Route: 065
  3. CYCLOSPORINE [Suspect]
     Indication: PROPHYLAXIS AGAINST TRANSPLANT REJECTION
     Route: 065
  4. BASILIXIMAB [Concomitant]
     Route: 065
  5. PREDNISONE [Concomitant]
     Dosage: 5 TO 10 MG
     Route: 065

REACTIONS (12)
  - Death [Fatal]
  - Cytomegalovirus infection [Fatal]
  - Cytomegalovirus gastritis [Fatal]
  - Cytomegalovirus viraemia [Fatal]
  - Cytomegalovirus colitis [Fatal]
  - Human polyomavirus infection [Fatal]
  - Blood creatinine increased [Unknown]
  - Urinary tract infection [Unknown]
  - Neoplasm malignant [Unknown]
  - Skin cancer [Unknown]
  - Lymphoproliferative disorder [Unknown]
  - Glucose tolerance impaired [Unknown]
